FAERS Safety Report 5846216-9 (Version None)
Quarter: 2008Q3

REPORT INFORMATION
  Report Type: 
  Country: None (occurrence: None)
  Receive Date: 20080813
  Receipt Date: 20080506
  Transmission Date: 20090109
  Serious: Yes (Life-Threatening, Hospitalization)
  Sender: FDA-Public Use
  Company Number: ADE2008-0182

PATIENT
  Age: 50 Year
  Sex: Female

DRUGS (3)
  1. FLUOXETINE [Suspect]
     Dosage: 20MG, ORAL
     Route: 048
     Dates: start: 20061109, end: 20061215
  2. ESTROGENIC SUBSTANCE [Suspect]
     Dosage: TRANSDERMAL
     Route: 062
     Dates: start: 20061201, end: 20061204
  3. ZOLMITRIPTAN [Concomitant]

REACTIONS (15)
  - ANAEMIA [None]
  - ARTHRALGIA [None]
  - BACK PAIN [None]
  - CONTUSION [None]
  - JOINT SWELLING [None]
  - LIP SWELLING [None]
  - MUSCULOSKELETAL PAIN [None]
  - NAIL DISORDER [None]
  - PERIPHERAL COLDNESS [None]
  - PLATELET COUNT DECREASED [None]
  - PRURITUS [None]
  - RASH [None]
  - SKIN DISCOLOURATION [None]
  - SYNOVITIS [None]
  - URTICARIA [None]
